FAERS Safety Report 21185465 (Version 1)
Quarter: 2022Q3

REPORT INFORMATION
  Report Type: Spontaneous
  Country: FR (occurrence: FR)
  Receive Date: 20220808
  Receipt Date: 20220808
  Transmission Date: 20221026
  Serious: Yes (Hospitalization)
  Sender: FDA-Public Use
  Company Number: FR-MYLANLABS-2022M1084865

PATIENT
  Age: 4 Decade
  Sex: Female

DRUGS (2)
  1. PREDNISONE [Suspect]
     Active Substance: PREDNISONE
     Indication: Sacroiliitis
     Dosage: 1 MILLIGRAM/KILOGRAM, QD
     Route: 065
  2. TRAMADOL [Suspect]
     Active Substance: TRAMADOL
     Indication: Sacroiliitis
     Dosage: 100 MILLIGRAM, TWO TIMES
     Route: 065

REACTIONS (1)
  - Drug ineffective [Unknown]
